FAERS Safety Report 9933005 (Version 1)
Quarter: 2014Q1

REPORT INFORMATION
  Report Type: Spontaneous
  Country: US (occurrence: US)
  Receive Date: 20140228
  Receipt Date: 20140228
  Transmission Date: 20141002
  Serious: Yes (Hospitalization)
  Sender: FDA-Public Use
  Company Number: US-GLAXOSMITHKLINE-A1043699A

PATIENT
  Age: 43 Year
  Sex: Female

DRUGS (6)
  1. LAMICTAL [Suspect]
     Indication: CONVULSION
     Route: 048
  2. AMITRIPTYLINE [Concomitant]
  3. LEVOTHYROXINE [Concomitant]
  4. DIAZEPAM [Concomitant]
  5. ONDANSETRON [Concomitant]
  6. HYDROCODONE [Concomitant]

REACTIONS (2)
  - Convulsion [Recovering/Resolving]
  - Urinary incontinence [Recovering/Resolving]
